FAERS Safety Report 8756586 (Version 1)
Quarter: 2012Q4

REPORT INFORMATION
  Report Type: 
  Country: US (occurrence: US)
  Receive Date: 20120828
  Receipt Date: 20120828
  Transmission Date: 20130627
  Serious: Yes (Other)
  Sender: FDA-Public Use
  Company Number: US-MERCK-1208USA010094

PATIENT

DRUGS (1)
  1. PEGINTRON [Suspect]
     Dosage: 120 Microgram, qw
     Route: 058
     Dates: start: 20120402, end: 20120813

REACTIONS (4)
  - Musculoskeletal stiffness [Unknown]
  - Trismus [Unknown]
  - Pyrexia [Unknown]
  - Chills [Unknown]
